FAERS Safety Report 4648197-2 (Version None)
Quarter: 2005Q2

REPORT INFORMATION
  Report Type: 
  Country: None (occurrence: None)
  Receive Date: 20050331
  Receipt Date: 20050110
  Transmission Date: 20051028
  Serious: No
  Sender: FDA-Public Use
  Company Number: 05P-163-0286057-00

PATIENT
  Age: 60 Year
  Sex: Female
  Weight: 87.9978 kg

DRUGS (4)
  1. HUMIRA [Suspect]
     Indication: RHEUMATOID ARTHRITIS
     Dosage: 40 MG, SUBCUTANEOUS
     Route: 058
     Dates: start: 20041214, end: 20041228
  2. METHOTREXATE [Concomitant]
  3. MELOXICAM [Concomitant]
  4. FOLIC ACID [Concomitant]

REACTIONS (2)
  - ERYTHEMA [None]
  - URTICARIA [None]
